FAERS Safety Report 20406198 (Version 1)
Quarter: 2022Q1

REPORT INFORMATION
  Report Type: Spontaneous
  Country: US (occurrence: None)
  Receive Date: 20220131
  Receipt Date: 20220131
  Transmission Date: 20220423
  Serious: Yes (Hospitalization)
  Sender: FDA-Public Use
  Company Number: None

PATIENT
  Sex: Male

DRUGS (1)
  1. STIVARGA [Suspect]
     Active Substance: REGORAFENIB
     Indication: Appendix cancer
     Dosage: FREQUENCY : DAILY;?
     Route: 048
     Dates: start: 20220105

REACTIONS (2)
  - Hypertension [None]
  - Aphasia [None]
